FAERS Safety Report 5848160-X (Version None)
Quarter: 2008Q3

REPORT INFORMATION
  Report Type: 
  Country: None (occurrence: None)
  Receive Date: 20080818
  Receipt Date: 20080807
  Transmission Date: 20090109
  Serious: Yes (Death)
  Sender: FDA-Public Use
  Company Number: A0742916A

PATIENT
  Age: 32 Year
  Sex: Female
  Weight: 54.5 kg

DRUGS (2)
  1. FLOLAN [Suspect]
     Indication: PULMONARY ARTERIAL HYPERTENSION
     Route: 042
     Dates: start: 20060612, end: 20080806
  2. FLOLAN [Suspect]
     Dates: start: 20060612, end: 20080806

REACTIONS (1)
  - PULMONARY HYPERTENSION [None]
